FAERS Safety Report 6031299-6 (Version None)
Quarter: 2008Q4

REPORT INFORMATION
  Report Type: 
  Country: None (occurrence: None)
  Receive Date: 20081224
  Receipt Date: 20080812
  Transmission Date: 20090506
  Serious: No
  Sender: FDA-Public Use
  Company Number: US-CVT-080064

PATIENT
  Sex: Male

DRUGS (1)
  1. RANEXA [Suspect]
     Indication: DRUG USE FOR UNKNOWN INDICATION
     Dates: start: 20060101

REACTIONS (1)
  - GYNAECOMASTIA [None]
